FAERS Safety Report 15821417 (Version 1)
Quarter: 2019Q1

REPORT INFORMATION
  Report Type: Spontaneous
  Country: US (occurrence: US)
  Receive Date: 20190114
  Receipt Date: 20190114
  Transmission Date: 20190417
  Serious: Yes (Other)
  Sender: FDA-Public Use
  Company Number: US-THE MENTHOLATUM COMPANY-2061159

PATIENT
  Age: 58 Year
  Sex: Female

DRUGS (1)
  1. ROHTO COOL [Suspect]
     Active Substance: NAPHAZOLINE HYDROCHLORIDE\POLYSORBATE 80
     Indication: DRY EYE
     Route: 047
     Dates: start: 20190105, end: 20190106

REACTIONS (1)
  - Eye pain [Recovered/Resolved]

NARRATIVE: CASE EVENT DATE: 20190106
